FAERS Safety Report 13237889 (Version 1)
Quarter: 2017Q1

REPORT INFORMATION
  Report Type: Report from Study
  Country: AR (occurrence: AR)
  Receive Date: 20170216
  Receipt Date: 20170216
  Transmission Date: 20170428
  Serious: Yes (Hospitalization, Other)
  Sender: FDA-Public Use
  Company Number: AR-BRISTOL-MYERS SQUIBB COMPANY-BMS-2017-010947

PATIENT
  Age: 68 Year
  Sex: Male

DRUGS (1)
  1. NIVOLUMAB [Suspect]
     Active Substance: NIVOLUMAB
     Indication: PRODUCT USED FOR UNKNOWN INDICATION
     Dosage: 100 MG, Q2WK
     Route: 042
     Dates: start: 20161226

REACTIONS (4)
  - Asthenia [Unknown]
  - Dizziness [Unknown]
  - Mental impairment [Unknown]
  - Off label use [Unknown]

NARRATIVE: CASE EVENT DATE: 20170201
